FAERS Safety Report 9587765 (Version 1)
Quarter: 2013Q4

REPORT INFORMATION
  Report Type: Spontaneous
  Country: US (occurrence: US)
  Receive Date: 20131003
  Receipt Date: 20131003
  Transmission Date: 20140711
  Serious: Yes (Other)
  Sender: FDA-Public Use
  Company Number: US-PERRIGO-13US009967

PATIENT
  Age: 14 Year
  Sex: Male
  Weight: 49.89 kg

DRUGS (6)
  1. NIGHTTIME CHERRY 6 HOUR 459 [Suspect]
     Indication: OROPHARYNGEAL PAIN
     Dosage: 30 ML, SINGLE, AT 2100
     Route: 048
     Dates: start: 20130924, end: 20130924
  2. NIGHTTIME CHERRY 6 HOUR 459 [Suspect]
     Indication: PAIN
  3. NIGHTTIME CHERRY 6 HOUR 459 [Suspect]
     Indication: RHINORRHOEA
  4. OTHER COLD PREPARATIONS [Concomitant]
     Indication: OROPHARYNGEAL PAIN
     Dosage: 30 ML, BID
     Route: 048
     Dates: start: 20130924, end: 20130924
  5. OTHER COLD PREPARATIONS [Concomitant]
     Indication: PAIN
  6. OTHER COLD PREPARATIONS [Concomitant]
     Indication: RHINORRHOEA

REACTIONS (7)
  - Hallucination [Recovered/Resolved]
  - Fall [Recovered/Resolved]
  - Dyskinesia [Recovered/Resolved]
  - Abnormal behaviour [Recovered/Resolved]
  - Feeling abnormal [Recovered/Resolved]
  - Headache [Unknown]
  - Fatigue [Unknown]
